FAERS Safety Report 6147045-1 (Version None)
Quarter: 2009Q2

REPORT INFORMATION
  Report Type: 
  Country: None (occurrence: None)
  Receive Date: 20090403
  Receipt Date: 20090327
  Transmission Date: 20091009
  Serious: Yes (Death, Hospitalization, Other)
  Sender: FDA-Public Use
  Company Number: 2008SP023031

PATIENT
  Age: 54 Year
  Sex: Male
  Weight: 72 kg

DRUGS (13)
  1. TEMODAL [Suspect]
     Indication: ANAPLASTIC ASTROCYTOMA
     Dosage: 75 MG/M2;QD;PO
     Route: 048
     Dates: start: 20080311, end: 20080422
  2. DEPAKENE [Suspect]
     Indication: PROPHYLAXIS
     Dosage: PO
     Route: 048
     Dates: end: 20080516
  3. BAKTAR [Concomitant]
  4. MAINTATE [Concomitant]
  5. AMLODIN OD [Concomitant]
  6. BLOPRESS [Concomitant]
  7. BEZATOL SR [Concomitant]
  8. MAGNESIUM OXIDE [Concomitant]
  9. PURSENNID [Concomitant]
  10. PRIMPERAN [Concomitant]
  11. NAVOBAN [Concomitant]
  12. GASTER D [Concomitant]
  13. RINDERON [Concomitant]

REACTIONS (3)
  - BRAIN DEATH [None]
  - CARDIAC ARREST [None]
  - PLATELET COUNT DECREASED [None]
